FAERS Safety Report 21784417 (Version 3)
Quarter: 2023Q1

REPORT INFORMATION
  Report Type: Report from Study
  Country: IE (occurrence: IE)
  Receive Date: 20221227
  Receipt Date: 20230131
  Transmission Date: 20230418
  Serious: Yes (Hospitalization)
  Sender: FDA-Public Use
  Company Number: IE-AstraZeneca-2022A388306

PATIENT
  Sex: Male

DRUGS (11)
  1. SYNAGIS [Suspect]
     Active Substance: PALIVIZUMAB
     Indication: Bronchopulmonary dysplasia
     Dates: start: 20221019
  2. SYNAGIS [Suspect]
     Active Substance: PALIVIZUMAB
     Indication: Dysplasia
     Dosage: 15 MG/KG AFTER 28 DAYS - DOSE 108MG, 100MG ADMINISTERED TO PATIENT.
     Dates: start: 20221117
  3. SYNAGIS [Suspect]
     Active Substance: PALIVIZUMAB
     Dosage: 15 MG/KG AFTER 28 DAYS - DOSE 108MG, 100MG ADMINISTERED TO PATIENT.
     Dates: start: 20221117
  4. SYNAGIS [Suspect]
     Active Substance: PALIVIZUMAB
     Dates: start: 20221219
  5. SYNAGIS [Suspect]
     Active Substance: PALIVIZUMAB
     Dates: start: 20221219
  6. SYNAGIS [Suspect]
     Active Substance: PALIVIZUMAB
     Dates: start: 20221219
  7. SYNAGIS [Suspect]
     Active Substance: PALIVIZUMAB
     Dates: start: 20221219
  8. CAPTOPRIL [Concomitant]
     Active Substance: CAPTOPRIL
     Dosage: 1.5ML UNKNOWN
  9. OMEPRAZOLE [Concomitant]
     Active Substance: OMEPRAZOLE
  10. ERYTHROMYCIN [Concomitant]
     Active Substance: ERYTHROMYCIN
     Dosage: 4 TIMES A DAY
  11. AMOXICILLIN [Concomitant]
     Active Substance: AMOXICILLIN

REACTIONS (4)
  - Vomiting [Not Recovered/Not Resolved]
  - Malaise [Unknown]
  - Cough [Not Recovered/Not Resolved]
  - Off label use [Unknown]
